FAERS Safety Report 5466896-X (Version None)
Quarter: 2007Q3

REPORT INFORMATION
  Report Type: 
  Country: None (occurrence: None)
  Receive Date: 20070920
  Receipt Date: 20070911
  Transmission Date: 20080115
  Serious: Yes (Hospitalization)
  Sender: FDA-Public Use
  Company Number: 2007-04212

PATIENT
  Age: 44 Year
  Sex: Male

DRUGS (8)
  1. METOPROLOL (WATSON LABORATORIES)(METOPROLOL TARTRATE) TABLET [Suspect]
     Indication: TACHYCARDIA
     Dosage: 95 MG, DAILY, ORAL, 47.5 MG, DAILY, ORAL
     Route: 048
     Dates: start: 20041001, end: 20041001
  2. METOPROLOL (WATSON LABORATORIES)(METOPROLOL TARTRATE) TABLET [Suspect]
     Indication: TACHYCARDIA
     Dosage: 95 MG, DAILY, ORAL, 47.5 MG, DAILY, ORAL
     Route: 048
     Dates: start: 20041001, end: 20041001
  3. METHADONE HCL [Concomitant]
  4. MEROPENEM (MEROPENEM) [Concomitant]
  5. ACETAMINOPHEN [Concomitant]
  6. AMITRIPTYLINE HCL [Concomitant]
  7. ONDANSETRON HCL [Concomitant]
  8. OMEPRAZOLE [Concomitant]

REACTIONS (4)
  - ENDOCARDITIS BACTERIAL [None]
  - HYPERKALAEMIA [None]
  - RESPIRATORY ACIDOSIS [None]
  - RESPIRATORY FAILURE [None]
